FAERS Safety Report 8790008 (Version 5)
Quarter: 2013Q4

REPORT INFORMATION
  Report Type: Report from Study
  Country: JP (occurrence: JP)
  Receive Date: 20120917
  Receipt Date: 20131114
  Transmission Date: 20140711
  Serious: Yes (Hospitalization)
  Sender: FDA-Public Use
  Company Number: JP-VERTEX PHARMACEUTICAL INC.-AE-2012-010100

PATIENT
  Age: 61 Year
  Sex: Female

DRUGS (8)
  1. VX-950 (TELAPREVIR) [Suspect]
     Indication: CHRONIC HEPATITIS C
     Dosage: 2250 MG, QD
     Route: 048
     Dates: start: 20120327, end: 20120521
  2. RIBAVIRIN [Suspect]
     Indication: CHRONIC HEPATITIS C
     Dosage: 600 MG, QD
     Route: 048
     Dates: start: 20120327, end: 20120528
  3. PEGINTERFERON ALFA-2B [Suspect]
     Indication: CHRONIC HEPATITIS C
     Dosage: 1.36 ?G/KG, QW
     Route: 058
     Dates: start: 20120327, end: 20120529
  4. PARIET [Concomitant]
     Dosage: 10 MG, QD
     Route: 048
  5. ACTOS [Concomitant]
     Dosage: 15 MG, QD
     Route: 048
  6. AMLODIN [Concomitant]
     Dosage: 5 MG, QD
     Route: 048
  7. AMARYL [Concomitant]
     Dosage: 0.5 MG, QD
     Route: 048
  8. NAIXAN [Concomitant]
     Dosage: 100 MG, QD/PRN
     Route: 048
     Dates: start: 20120327, end: 20120424

REACTIONS (9)
  - Malnutrition [Recovered/Resolved]
  - Decreased appetite [Recovered/Resolved]
  - Renal impairment [Recovered/Resolved]
  - Renal impairment [Recovered/Resolved]
  - Dysgeusia [Not Recovered/Not Resolved]
  - Dysgeusia [Recovered/Resolved]
  - Anaemia [Recovered/Resolved]
  - Hyperuricaemia [Recovered/Resolved]
  - Hyperuricaemia [Recovered/Resolved]
